FAERS Safety Report 4436674-9 (Version None)
Quarter: 2004Q3

REPORT INFORMATION
  Report Type: 
  Country: None (occurrence: None)
  Receive Date: 20040728
  Receipt Date: 20031107
  Transmission Date: 20050211
  Serious: Yes (Other)
  Sender: FDA-Public Use
  Company Number: 203076

PATIENT
  Age: 77 Year
  Sex: 0

DRUGS (3)
  1. RITUXAN [Suspect]
     Indication: WALDENSTROM'S MACROGLOBULINAEMIA
     Dosage: 375 MG/M2
     Dates: start: 20030609
  2. CLADRIBINE [Concomitant]
  3. NEUPOGEN [Concomitant]

REACTIONS (1)
  - NEUTROPENIA [None]
